FAERS Safety Report 9892258 (Version 2)
Quarter: 2014Q1

REPORT INFORMATION
  Report Type: Spontaneous
  Country: SE (occurrence: SE)
  Receive Date: 20140212
  Receipt Date: 20140328
  Transmission Date: 20141002
  Serious: Yes (Other)
  Sender: FDA-Public Use
  Company Number: CHPA2014SE002118

PATIENT
  Sex: Female

DRUGS (1)
  1. NICOTINELL TTS [Suspect]

REACTIONS (2)
  - Drug dependence [Unknown]
  - Inappropriate schedule of drug administration [Unknown]
